FAERS Safety Report 24307152 (Version 1)
Quarter: 2024Q3

REPORT INFORMATION
  Report Type: Spontaneous
  Country: US (occurrence: US)
  Receive Date: 20240911
  Receipt Date: 20240911
  Transmission Date: 20241017
  Serious: No
  Sender: BAYER
  Company Number: US-BAYER-2024A127903

PATIENT
  Age: 76 Year
  Sex: Male

DRUGS (3)
  1. MIRALAX [Suspect]
     Active Substance: POLYETHYLENE GLYCOL 3350
     Dosage: THE DIRECTED DOSE WITH THE WHITE SECTION IN THE CAP WITH WATER
     Route: 048
  2. CELEBREX [Concomitant]
     Active Substance: CELECOXIB
     Indication: Product used for unknown indication
     Dosage: :1 IN THE MORNING 1 IN THE EVENING
     Route: 048
  3. TYLENOL [Concomitant]
     Active Substance: ACETAMINOPHEN
     Indication: Gastrointestinal disorder
     Route: 065

REACTIONS (1)
  - Drug ineffective [Not Recovered/Not Resolved]
